FAERS Safety Report 6958875-8 (Version None)
Quarter: 2010Q3

REPORT INFORMATION
  Report Type: 
  Country: None (occurrence: None)
  Receive Date: 20100831
  Receipt Date: 20100826
  Transmission Date: 20110219
  Serious: Yes (Hospitalization, Other)
  Sender: FDA-Public Use
  Company Number: US-BAYER-201030199NA

PATIENT
  Age: 75 Year
  Sex: Male

DRUGS (2)
  1. BETASERON [Suspect]
     Indication: MULTIPLE SCLEROSIS
     Dosage: TOTAL DAILY DOSE: 8 MIU
     Route: 058
     Dates: start: 19990119
  2. BETASERON [Suspect]
     Route: 058
     Dates: start: 19900101

REACTIONS (3)
  - FOREIGN BODY [None]
  - PULMONARY OEDEMA [None]
  - SILENT MYOCARDIAL INFARCTION [None]
